FAERS Safety Report 5957462-8 (Version None)
Quarter: 2008Q4

REPORT INFORMATION
  Report Type: 
  Country: None (occurrence: None)
  Receive Date: 20081114
  Receipt Date: 20081103
  Transmission Date: 20090506
  Serious: Yes (Hospitalization)
  Sender: FDA-Public Use
  Company Number: 230627K08USA

PATIENT
  Age: 46 Year
  Sex: Female
  Weight: 68 kg

DRUGS (11)
  1. REBIF [Suspect]
     Indication: OFF LABEL USE
     Dosage: 44 MCG, 3 IN 1 WEEKS, SUBCUTANEOUS
     Route: 058
     Dates: start: 20080423, end: 20080101
  2. LEVOTHYROXINE (LEVOTHYROXINE /00068001/) [Suspect]
     Indication: THYROID DISORDER
     Dosage: NOT REPORTED, 1 IN 1 DAYS, NOT REPORTED
  3. LYRICA [Concomitant]
  4. TIZANIDINE HCL [Concomitant]
  5. DOXEPIN (DOXEPIN /00138001/) [Concomitant]
  6. IBUPROFEN [Concomitant]
  7. OXYCODONE HCL [Concomitant]
  8. MORPHINE [Concomitant]
  9. BACLOFEN [Concomitant]
  10. IRON (IRON) [Concomitant]
  11. HYDROXYZINE (HYDROXYZINE /00058401/) [Concomitant]

REACTIONS (2)
  - CYSTITIS [None]
  - VERTIGO [None]
